FAERS Safety Report 6563030-X (Version None)
Quarter: 2010Q1

REPORT INFORMATION
  Report Type: 
  Country: None (occurrence: None)
  Receive Date: 20100130
  Receipt Date: 20091215
  Transmission Date: 20100710
  Serious: Yes (Hospitalization)
  Sender: FDA-Public Use
  Company Number: US-ABBOTT-09P-163-0611685-00

PATIENT
  Sex: Female
  Weight: 85.352 kg

DRUGS (23)
  1. HUMIRA [Suspect]
     Indication: RHEUMATOID ARTHRITIS
     Dates: start: 20060101, end: 20091023
  2. HUMIRA [Suspect]
     Dates: start: 20091115
  3. CARDURA [Suspect]
     Indication: HYPERTENSION
     Dates: start: 20091022, end: 20091024
  4. PRILOSEC [Concomitant]
     Indication: GASTROOESOPHAGEAL REFLUX DISEASE
  5. CITALOPRAM [Concomitant]
     Indication: ANXIETY
  6. CITALOPRAM [Concomitant]
     Indication: PANIC ATTACK
  7. LOMOTIL [Concomitant]
     Indication: DIARRHOEA
     Dosage: UP TO 4 TABLETS DAILY PRN
  8. AMLODIPINE BESYLATE [Concomitant]
     Indication: HYPERTENSION
  9. TEKTURNA [Concomitant]
     Indication: HYPERTENSION
     Dates: start: 20091026
  10. FOLIC ACID [Concomitant]
     Indication: RHEUMATOID ARTHRITIS
  11. METHOTREXATE [Concomitant]
     Indication: RHEUMATOID ARTHRITIS
     Route: 050
  12. POTASSIUM [Concomitant]
     Indication: MINERAL SUPPLEMENTATION
  13. LASIX [Concomitant]
     Indication: PULMONARY HYPERTENSION
  14. NEURONTIN [Concomitant]
     Indication: MUSCLE SPASMS
  15. NEURONTIN [Concomitant]
  16. DESYREL [Concomitant]
     Indication: DEPRESSION
     Dosage: 100 MG AT BEDTIME, CAN TAKE UP 250 MG
  17. ADVAIR DISKUS 100/50 [Concomitant]
     Indication: ASTHMA
     Dosage: 250/50, 2 PUFFS ONCE DAILY
     Route: 055
  18. SPIRIVA [Concomitant]
     Indication: ASTHMA
     Route: 055
  19. ALBUTEROL [Concomitant]
     Indication: ASTHMA
     Route: 055
  20. COENZYME Q10 [Concomitant]
     Indication: MUSCLE SPASMS
  21. CALCIUM [Concomitant]
     Indication: DRUG USE FOR UNKNOWN INDICATION
  22. VITAMINS [Concomitant]
     Indication: DRUG USE FOR UNKNOWN INDICATION
  23. TUBERCULOSIS VACCINES [Concomitant]
     Indication: DRUG USE FOR UNKNOWN INDICATION
     Dates: start: 20091020, end: 20091020

REACTIONS (5)
  - CHEST PAIN [None]
  - EXTRASYSTOLES [None]
  - HEART RATE INCREASED [None]
  - NASOPHARYNGITIS [None]
  - URINARY TRACT INFECTION [None]
